FAERS Safety Report 7934553 (Version 2)
Quarter: 2012Q4

REPORT INFORMATION
  Report Type: Spontaneous
  Country: US (occurrence: None)
  Receive Date: 20110418
  Receipt Date: 20120831
  Transmission Date: 20130627
  Serious: Yes (Other)
  Sender: FDA-Public Use
  Company Number: 2011MA003455

PATIENT
  Sex: Male

DRUGS (1)
  1. METOCLOPRAMIDE [Suspect]
     Dates: start: 200204, end: 200303

REACTIONS (7)
  - TARDIVE DYSKINESIA [None]
  - DYSTONIA [None]
  - CHOREA [None]
  - EXTRAPYRAMIDAL DISORDER [None]
  - DYSKINESIA [None]
  - EMOTIONAL DISORDER [None]
  - ECONOMIC PROBLEM [None]
